FAERS Safety Report 5720361-0 (Version None)
Quarter: 2008Q2

REPORT INFORMATION
  Report Type: 
  Country: None (occurrence: None)
  Receive Date: 20080428
  Receipt Date: 20080415
  Transmission Date: 20081010
  Serious: Yes (Other)
  Sender: FDA-Public Use
  Company Number: US-ELI_LILLY_AND_COMPANY-US200804004057

PATIENT
  Sex: Female

DRUGS (2)
  1. STRATTERA [Suspect]
     Dosage: 100 MG, DAILY (1/D)
     Dates: start: 20070401, end: 20080408
  2. WELLBUTRIN [Concomitant]

REACTIONS (12)
  - CHEST PAIN [None]
  - DIZZINESS [None]
  - DRUG INEFFECTIVE [None]
  - FATIGUE [None]
  - FEELING ABNORMAL [None]
  - FEELING JITTERY [None]
  - HEART RATE DECREASED [None]
  - HYPOTENSION [None]
  - NAUSEA [None]
  - PARAESTHESIA [None]
  - PRESYNCOPE [None]
  - SYNCOPE VASOVAGAL [None]
